FAERS Safety Report 4273778-8 (Version None)
Quarter: 2004Q1

REPORT INFORMATION
  Report Type: 
  Country: None (occurrence: None)
  Receive Date: 20040114
  Receipt Date: 20040105
  Transmission Date: 20041129
  Serious: Yes (Hospitalization)
  Sender: FDA-Public Use
  Company Number: A001-319-584

PATIENT
  Age: 82 Year
  Sex: Female
  Weight: 75.8 kg

DRUGS (2)
  1. DONEPEZIL HCL [Suspect]
     Indication: VASCULAR DEMENTIA
     Dosage: 5 MG, 1 IN 1 D, ORAL
     Route: 048
     Dates: start: 20030926, end: 20031218
  2. PENTALONG (PENTAERITHRITYL TETRANITRATE) [Concomitant]

REACTIONS (3)
  - DELUSION [None]
  - MEMORY IMPAIRMENT [None]
  - PSYCHOTIC DISORDER [None]
